FAERS Safety Report 10792217 (Version 1)
Quarter: 2015Q1

REPORT INFORMATION
  Report Type: Spontaneous
  Country: DE (occurrence: DE)
  Receive Date: 20150213
  Receipt Date: 20150213
  Transmission Date: 20150721
  Serious: Yes (Hospitalization)
  Sender: FDA-Public Use
  Company Number: DE-SA-2015SA015512

PATIENT
  Age: 89 Year
  Sex: Male
  Weight: 89.7 kg

DRUGS (1)
  1. CLEXANE [Suspect]
     Active Substance: ENOXAPARIN SODIUM
     Indication: PULMONARY EMBOLISM
     Route: 065

REACTIONS (4)
  - Muscle haemorrhage [Recovered/Resolved]
  - Acute kidney injury [Recovered/Resolved]
  - Hypovolaemic shock [Recovered/Resolved]
  - Haemorrhagic anaemia [Recovered/Resolved]

NARRATIVE: CASE EVENT DATE: 20141024
